FAERS Safety Report 24549986 (Version 1)
Quarter: 2024Q4

REPORT INFORMATION
  Report Type: Spontaneous
  Country: US (occurrence: None)
  Receive Date: 20241024
  Receipt Date: 20241024
  Transmission Date: 20250114
  Serious: Yes (Other)
  Sender: Public
  Company Number: None

PATIENT
  Age: 23 Year
  Sex: Male
  Weight: 55.8 kg

DRUGS (1)
  1. VIJOICE [Suspect]
     Active Substance: ALPELISIB
     Indication: PIK3CA related overgrowth spectrum
     Dosage: FREQUENCY : DAILY;?
     Route: 048
     Dates: start: 20231231

REACTIONS (1)
  - Polycythaemia [None]

NARRATIVE: CASE EVENT DATE: 20241001
